FAERS Safety Report 24379284 (Version 1)
Quarter: 2024Q3

REPORT INFORMATION
  Report Type: Spontaneous
  Country: JP (occurrence: JP)
  Receive Date: 20240930
  Receipt Date: 20240930
  Transmission Date: 20241017
  Serious: Yes (Other)
  Sender: ROCHE
  Company Number: JP-CHUGAI-2024033028

PATIENT
  Sex: Female
  Weight: 27 kg

DRUGS (1)
  1. ACTEMRA [Suspect]
     Active Substance: TOCILIZUMAB
     Indication: Rheumatoid arthritis
     Dosage: 240 MILLIGRAM
     Route: 042
     Dates: start: 2012

REACTIONS (3)
  - Weight decreased [Unknown]
  - Gastrointestinal disorder [Unknown]
  - Off label use [Unknown]
